FAERS Safety Report 7879319-8 (Version None)
Quarter: 2011Q4

REPORT INFORMATION
  Report Type: 
  Country: None (occurrence: None)
  Receive Date: 20111101
  Receipt Date: 20111018
  Transmission Date: 20120403
  Serious: Yes (Death, Hospitalization)
  Sender: FDA-Public Use
  Company Number: IN-ELI_LILLY_AND_COMPANY-IN201110004419

PATIENT
  Age: 68 Year
  Sex: Female

DRUGS (3)
  1. VITAMIN D [Concomitant]
  2. FORTEO [Suspect]
     Indication: OSTEOPOROSIS
     Dosage: 20 UG, QD
     Route: 058
     Dates: start: 20111010
  3. CALCIUM [Concomitant]

REACTIONS (2)
  - DEATH [None]
  - CARDIAC DISORDER [None]
